FAERS Safety Report 14956818 (Version 2)
Quarter: 2019Q2

REPORT INFORMATION
  Report Type: Spontaneous
  Country: US (occurrence: US)
  Receive Date: 20180531
  Receipt Date: 20190524
  Transmission Date: 20190711
  Serious: No
  Sender: FDA-Public Use
  Company Number: US-NOVEN PHARMACEUTICALS, INC.-US2017001252

PATIENT

DRUGS (2)
  1. DAYTRANA [Suspect]
     Active Substance: METHYLPHENIDATE
     Indication: ATTENTION DEFICIT/HYPERACTIVITY DISORDER
     Dosage: 20 MG, UNKNOWN
     Route: 062
     Dates: start: 2017
  2. GUANFACINE. [Concomitant]
     Active Substance: GUANFACINE
     Indication: ANXIETY
     Dosage: 1/2 MG, MORNING

REACTIONS (5)
  - Product prescribing error [Not Recovered/Not Resolved]
  - Impulsive behaviour [Recovered/Resolved]
  - Boredom [Recovered/Resolved]
  - Product dose omission [Unknown]
  - Drug ineffective [Recovered/Resolved]

NARRATIVE: CASE EVENT DATE: 2017
